FAERS Safety Report 14235927 (Version 2)
Quarter: 2018Q1

REPORT INFORMATION
  Report Type: Spontaneous
  Country: CN (occurrence: CN)
  Receive Date: 20171129
  Receipt Date: 20180125
  Transmission Date: 20180508
  Serious: Yes (Other)
  Sender: FDA-Public Use
  Company Number: CN-PFIZER INC-2017506340

PATIENT
  Sex: Female

DRUGS (2)
  1. EPIRUBICIN HCL [Suspect]
     Active Substance: EPIRUBICIN HYDROCHLORIDE
     Indication: INTRADUCTAL PROLIFERATIVE BREAST LESION
     Dosage: 80MG/M2, (D1, 1 CYCLE)
     Route: 064
  2. PACLITAXEL. [Suspect]
     Active Substance: PACLITAXEL
     Indication: INTRADUCTAL PROLIFERATIVE BREAST LESION
     Dosage: 80 MG, CYCLIC(D1, 8, 15, AND CYCLED EVERY 21 DAYS, 1 CYCLE)
     Route: 064

REACTIONS (3)
  - Maternal exposure during pregnancy [Unknown]
  - Jaundice neonatal [Recovered/Resolved]
  - Premature labour [Unknown]
